FAERS Safety Report 20536388 (Version 1)
Quarter: 2022Q1

REPORT INFORMATION
  Report Type: Spontaneous
  Country: US (occurrence: US)
  Receive Date: 20220302
  Receipt Date: 20220302
  Transmission Date: 20220423
  Serious: Yes (Other)
  Sender: FDA-Public Use
  Company Number: US-SA-SAC20220225000359

PATIENT

DRUGS (1)
  1. CAMPATH [Suspect]
     Active Substance: ALEMTUZUMAB

REACTIONS (2)
  - Pituitary enlargement [Unknown]
  - Hypophysitis [Unknown]
